FAERS Safety Report 15404024 (Version 1)
Quarter: 2018Q3

REPORT INFORMATION
  Report Type: Spontaneous
  Country: US (occurrence: US)
  Receive Date: 20180919
  Receipt Date: 20180919
  Transmission Date: 20181010
  Serious: No
  Sender: FDA-Public Use
  Company Number: US-AVADEL SPECIALTY PHARMACEUTICALS, LLC-2018AVA00143

PATIENT
  Age: 75 Year
  Sex: Female
  Weight: 58.05 kg

DRUGS (7)
  1. BACLOFEN. [Concomitant]
     Active Substance: BACLOFEN
  2. BIOTIN [Concomitant]
     Active Substance: BIOTIN
  3. LETROZOLE. [Concomitant]
     Active Substance: LETROZOLE
  4. ASPIRIN LOW?DOSE [Concomitant]
  5. TRAMADOL. [Concomitant]
     Active Substance: TRAMADOL
  6. ALIGN [Concomitant]
     Active Substance: BIFIDOBACTERIUM LONGUM SUBSP. INFANTIS
  7. NOCTIVA [Suspect]
     Active Substance: DESMOPRESSIN ACETATE
     Indication: NOCTURIA
     Dosage: 0.83 ?G, 1X/DAY AT BEDTIME ALTERNATE LEFT AND RIGHT NOSTRIL
     Route: 045
     Dates: start: 20180620, end: 20180620

REACTIONS (5)
  - Cough [Unknown]
  - Product preparation error [Recovered/Resolved]
  - Oropharyngeal pain [Unknown]
  - Sinus headache [Unknown]
  - Lacrimation increased [Unknown]

NARRATIVE: CASE EVENT DATE: 20180620
